FAERS Safety Report 6667795-8 (Version None)
Quarter: 2010Q2

REPORT INFORMATION
  Report Type: 
  Country: None (occurrence: None)
  Receive Date: 20100405
  Receipt Date: 20100324
  Transmission Date: 20101027
  Serious: Yes (Hospitalization, Other)
  Sender: FDA-Public Use
  Company Number: PHHY2010IT19421

PATIENT
  Age: 27 Year
  Sex: Female

DRUGS (4)
  1. CYCLOSPORINE [Suspect]
     Indication: RENAL TRANSPLANT
     Dosage: UNK
     Dates: start: 19950101
  2. METHYLPREDNISOLONE [Suspect]
     Indication: RENAL TRANSPLANT
     Dosage: UNK
     Dates: start: 19950101
  3. AZATHIOPRINE [Suspect]
  4. ANTITHYMOCYTE IMMUNOGLOBULIN [Concomitant]
     Indication: RENAL TRANSPLANT
     Dosage: UNK
     Dates: start: 19950101

REACTIONS (17)
  - B-CELL LYMPHOMA [None]
  - BLOOD CREATININE INCREASED [None]
  - BLOOD PRESSURE INCREASED [None]
  - CATARACT [None]
  - CENTRAL NERVOUS SYSTEM LYMPHOMA [None]
  - CLONUS [None]
  - DIPLOPIA [None]
  - EPSTEIN-BARR VIRUS ANTIBODY POSITIVE [None]
  - EPSTEIN-BARR VIRUS ASSOCIATED LYMPHOPROLIFERATIVE DISORDER [None]
  - FACIAL SPASM [None]
  - HEADACHE [None]
  - LEUKOENCEPHALOPATHY [None]
  - MASS EXCISION [None]
  - MUSCLE TWITCHING [None]
  - ROAD TRAFFIC ACCIDENT [None]
  - SCINTILLATING SCOTOMA [None]
  - VIRAL TEST POSITIVE [None]
